FAERS Safety Report 11108788 (Version 1)
Quarter: 2015Q2

REPORT INFORMATION
  Report Type: Spontaneous
  Country: JP (occurrence: None)
  Receive Date: 20150511
  Receipt Date: 20150511
  Transmission Date: 20150821
  Serious: Yes (Hospitalization, Other)
  Sender: FDA-Public Use
  Company Number: ADR-2015-00912

PATIENT
  Age: 26 Year
  Sex: Female
  Weight: 35 kg

DRUGS (2)
  1. GABALON INTRATHECAL 2000 MCG/ML [Suspect]
     Active Substance: BACLOFEN
     Indication: CEREBRAL PALSY
  2. GABALON INTRATHECAL 2000 MCG/ML [Suspect]
     Active Substance: BACLOFEN
     Indication: MUSCLE SPASTICITY

REACTIONS (10)
  - Muscle tightness [None]
  - Pyrexia [None]
  - Pneumonia aspiration [None]
  - C-reactive protein increased [None]
  - Drug withdrawal syndrome [None]
  - Drug administration error [None]
  - Blood creatine phosphokinase increased [None]
  - Vomiting [None]
  - Flatulence [None]
  - Hypotonia [None]

NARRATIVE: CASE EVENT DATE: 20131022
